FAERS Safety Report 4393255-3 (Version None)
Quarter: 2004Q3

REPORT INFORMATION
  Report Type: 
  Country: None (occurrence: None)
  Receive Date: 20040702
  Receipt Date: 20040622
  Transmission Date: 20050211
  Serious: Yes (Hospitalization)
  Sender: FDA-Public Use
  Company Number: GB-JNJFOC-20040605426

PATIENT
  Age: 47 Year
  Sex: Female

DRUGS (8)
  1. REMICADE [Suspect]
     Indication: RHEUMATOID ARTHRITIS
     Dosage: 200 MG, INTRAVENOUS;  150 MG, INTRAVENOUS
     Route: 042
     Dates: start: 20020710
  2. METHOTREXATE [Concomitant]
  3. FOLIC ACID [Concomitant]
  4. PREDNISOLONE [Concomitant]
  5. DICLOFENAC (DICLOFENAC) [Concomitant]
  6. PARACETAMOL (PARACETAMOL) [Concomitant]
  7. DIHYDROCODEINE (DIHYDROCODEINE) [Concomitant]
  8. PREMAK C (PREMPAK / OLDFORM/) [Concomitant]

REACTIONS (2)
  - BLADDER DISORDER [None]
  - HAEMATURIA [None]
